FAERS Safety Report 17105140 (Version 2)
Quarter: 2019Q4

REPORT INFORMATION
  Report Type: Report from Study
  Country: US (occurrence: US)
  Receive Date: 20191203
  Receipt Date: 20191213
  Transmission Date: 20200122
  Serious: Yes (Death, Other)
  Sender: FDA-Public Use
  Company Number: US-TEVA-2019-US-1146562

PATIENT
  Age: 51 Year
  Sex: Female

DRUGS (7)
  1. OXYMORPHONE [Concomitant]
     Active Substance: OXYMORPHONE
     Indication: POSTOPERATIVE ANALGESIA
     Route: 065
  2. PAROXETINE. [Concomitant]
     Active Substance: PAROXETINE
     Indication: DEPRESSION
     Route: 065
  3. TRAZODONE [Concomitant]
     Active Substance: TRAZODONE HYDROCHLORIDE
     Indication: DEPRESSION
     Route: 065
  4. GABAPENTIN. [Suspect]
     Active Substance: GABAPENTIN
     Indication: ANXIETY
     Route: 065
  5. OXYCODONE HYDROCHLORIDE. [Suspect]
     Active Substance: OXYCODONE HYDROCHLORIDE
     Indication: POSTOPERATIVE ANALGESIA
     Dosage: DOSE: 5 MG/5 ML OF LIQUID OXYCODONE FOR 4 DAYS CONTAINING 420ML (5-15ML UP TO 4 TIMES A DAY)
     Route: 048
  6. ZOLPIDEM [Concomitant]
     Active Substance: ZOLPIDEM TARTRATE
     Indication: SLEEP APNOEA SYNDROME
     Route: 065
  7. ACETAMINOPHEN W/OXYCODONE [Suspect]
     Active Substance: ACETAMINOPHEN\OXYCODONE HYDROCHLORIDE
     Indication: POSTOPERATIVE ANALGESIA
     Dosage: DOSE: OXYCODONE/PARACETAMOL 10/325 3 TIMES A DAY FOR 30 DAYS
     Route: 048

REACTIONS (2)
  - Accidental poisoning [Fatal]
  - Disorientation [Unknown]
